FAERS Safety Report 24727789 (Version 1)
Quarter: 2024Q4

REPORT INFORMATION
  Report Type: Spontaneous
  Country: US (occurrence: None)
  Receive Date: 20241212
  Receipt Date: 20241212
  Transmission Date: 20250114
  Serious: Yes (Life-Threatening)
  Sender: Public
  Company Number: None

PATIENT
  Age: 62 Year
  Sex: Male
  Weight: 79 kg

DRUGS (2)
  1. REGADENOSON [Suspect]
     Active Substance: REGADENOSON
     Indication: Cardiovascular disorder
     Dosage: OTHER FREQUENCY : ONCE;?
     Route: 042
     Dates: start: 20240208, end: 20240208
  2. REGADENOSON [Suspect]
     Active Substance: REGADENOSON
     Indication: Surgery

REACTIONS (11)
  - Bradycardia [None]
  - Hypertension [None]
  - Palpitations [None]
  - Syncope [None]
  - Flushing [None]
  - Abdominal pain [None]
  - Dizziness [None]
  - Cold sweat [None]
  - Unresponsive to stimuli [None]
  - Nodal rhythm [None]
  - Lethargy [None]

NARRATIVE: CASE EVENT DATE: 20240208
